FAERS Safety Report 16823865 (Version 2)
Quarter: 2019Q3

REPORT INFORMATION
  Report Type: Spontaneous
  Country: TR (occurrence: TR)
  Receive Date: 20190918
  Receipt Date: 20190927
  Transmission Date: 20191005
  Serious: Yes (Life-Threatening)
  Sender: FDA-Public Use
  Company Number: TR-AMGEN-TURSP2019148935

PATIENT
  Age: 18 Year
  Sex: Female
  Weight: 100 kg

DRUGS (4)
  1. SINGLE DOSE PREFILLED AUTOINJECTOR(AMGEVITA) [Suspect]
     Active Substance: ADALIMUMAB
     Indication: JUVENILE IDIOPATHIC ARTHRITIS
     Dosage: 40 MILLIGRAM
     Route: 058
     Dates: start: 20190703, end: 2019
  2. FOLBIOL [Concomitant]
     Active Substance: FOLIC ACID
     Indication: JUVENILE IDIOPATHIC ARTHRITIS
     Dosage: 1 UNK, 3 TIMES/WK
  3. AMGEVITA [Suspect]
     Active Substance: ADALIMUMAB
     Indication: FAMILIAL MEDITERRANEAN FEVER
  4. METHOTREXATE. [Concomitant]
     Active Substance: METHOTREXATE
     Indication: JUVENILE IDIOPATHIC ARTHRITIS
     Dosage: 20 MILLIGRAM, QWK

REACTIONS (3)
  - Dyspnoea [Recovered/Resolved]
  - Lip swelling [Recovered/Resolved]
  - Rash [Recovered/Resolved]

NARRATIVE: CASE EVENT DATE: 2019
